FAERS Safety Report 16687857 (Version 1)
Quarter: 2019Q3

REPORT INFORMATION
  Report Type: Spontaneous
  Country: US (occurrence: US)
  Receive Date: 20190809
  Receipt Date: 20190809
  Transmission Date: 20191004
  Serious: Yes (Hospitalization)
  Sender: FDA-Public Use
  Company Number: US-MIKART, LLC-2072962

PATIENT
  Sex: Male

DRUGS (1)
  1. CHLORZOXAZONE. [Suspect]
     Active Substance: CHLORZOXAZONE
     Route: 048

REACTIONS (4)
  - Nausea [Unknown]
  - Hepatic enzyme abnormal [Unknown]
  - Vomiting [Unknown]
  - Hepatotoxicity [Unknown]
